FAERS Safety Report 24424693 (Version 1)
Quarter: 2024Q4

REPORT INFORMATION
  Report Type: Report from Study
  Country: US (occurrence: US)
  Receive Date: 20241010
  Receipt Date: 20241010
  Transmission Date: 20250114
  Serious: Yes (Hospitalization)
  Sender: TAKEDA
  Company Number: US-TAKEDA-2021TUS056705

PATIENT
  Sex: Male

DRUGS (2)
  1. IDURSULFASE [Suspect]
     Active Substance: IDURSULFASE
     Indication: Product used for unknown indication
     Dosage: UNK, 1/WEEK
     Route: 042
     Dates: start: 20210809
  2. IDURSULFASE [Suspect]
     Active Substance: IDURSULFASE
     Dosage: UNK
     Route: 042

REACTIONS (5)
  - Hospitalisation [Recovered/Resolved]
  - Fall [Recovering/Resolving]
  - Product dose omission issue [Recovered/Resolved]
  - Infusion related reaction [Recovering/Resolving]
  - Diarrhoea [Recovering/Resolving]
